FAERS Safety Report 6541913-4 (Version None)
Quarter: 2010Q1

REPORT INFORMATION
  Report Type: 
  Country: None (occurrence: None)
  Receive Date: 20100119
  Receipt Date: 20100114
  Transmission Date: 20100710
  Serious: Yes (Hospitalization)
  Sender: FDA-Public Use
  Company Number: DE-WYE-G05339810

PATIENT
  Sex: Male
  Weight: 80 kg

DRUGS (3)
  1. TREVILOR RETARD [Suspect]
     Dosage: THERAPEUTIC DOSE REGIMEN UNKNOWN; MAX. 10 CAPSULES (MAX. OVERDOSE AMOUNT 750 MG) ON 13-JAN-2010
     Route: 048
  2. ZOPICLONE [Suspect]
     Dosage: THERAPEUTIC DOSE REGIMEN UNKNOWN; MAX. 10 TABLETS (MAX. OVERDOSE AMOUNT 75 MG) ON 13-JAN-2010
     Route: 048
  3. SEROQUEL [Suspect]
     Dosage: THERAPEUTIC DOSE REGIMEN UNKNOWN; MAX. 10 TABLETS (MAX. OVERDOSE AMOUNT 2000 MG) ON 13-JAN-2010

REACTIONS (4)
  - COMA [None]
  - ILEUS PARALYTIC [None]
  - INTENTIONAL OVERDOSE [None]
  - SUICIDE ATTEMPT [None]
